FAERS Safety Report 9814054 (Version 2)
Quarter: 2014Q1

REPORT INFORMATION
  Report Type: Spontaneous
  Country: US (occurrence: US)
  Receive Date: 20140113
  Receipt Date: 20140113
  Transmission Date: 20141002
  Serious: No
  Sender: FDA-Public Use
  Company Number: US-ASTELLAS-2013US011227

PATIENT
  Age: 92 Year
  Sex: Female

DRUGS (4)
  1. VESICARE [Suspect]
     Indication: MICTURITION URGENCY
     Dosage: 10 MG, UID/QD
     Route: 048
     Dates: start: 2012, end: 20131020
  2. VESICARE [Suspect]
     Indication: NOCTURIA
  3. MYRBETRIQ [Suspect]
     Indication: MICTURITION URGENCY
     Dosage: 25 MG, UID/QD
     Route: 048
     Dates: start: 20131021
  4. MYRBETRIQ [Suspect]
     Indication: NOCTURIA

REACTIONS (4)
  - Drug ineffective [Unknown]
  - Off label use [Unknown]
  - Bronchitis [Recovering/Resolving]
  - Nocturia [Unknown]
